FAERS Safety Report 6243801-X (Version None)
Quarter: 2009Q2

REPORT INFORMATION
  Report Type: 
  Country: None (occurrence: None)
  Receive Date: 20090624
  Receipt Date: 20090610
  Transmission Date: 20091009
  Serious: Yes (Hospitalization)
  Sender: FDA-Public Use
  Company Number: PHHY2009MX22327

PATIENT
  Sex: Female

DRUGS (1)
  1. DIOVAN HCT [Suspect]
     Indication: HYPERTENSION
     Dosage: 1 TABLET (80/12.5MG) PER DAY
     Route: 048
     Dates: end: 20090503

REACTIONS (6)
  - ABDOMINAL PAIN [None]
  - ANAESTHETIC COMPLICATION [None]
  - CONSTIPATION [None]
  - DEPRESSION [None]
  - INTESTINAL OPERATION [None]
  - VOMITING [None]
